FAERS Safety Report 6766666-6 (Version None)
Quarter: 2010Q2

REPORT INFORMATION
  Report Type: 
  Country: None (occurrence: None)
  Receive Date: 20100611
  Receipt Date: 20100526
  Transmission Date: 20101027
  Serious: Yes (Death, Hospitalization, Other)
  Sender: FDA-Public Use
  Company Number: PHEH2008US08657

PATIENT
  Sex: Female

DRUGS (30)
  1. ZOMETA [Suspect]
     Dosage: UNK
     Dates: start: 20050101
  2. FEMARA [Concomitant]
     Dosage: 2.5 MG TABLETS
  3. TAMOXIFEN [Concomitant]
  4. ADRIAMYCIN PFS [Concomitant]
  5. RADIATION [Concomitant]
  6. XELODA [Concomitant]
  7. AROMASIN [Concomitant]
  8. VICODIN [Concomitant]
  9. OXYCONTIN [Concomitant]
  10. PRILOSEC [Concomitant]
  11. REGLAN [Concomitant]
  12. AMOXIL ^AYERST LAB^ [Concomitant]
  13. FENTANYL [Concomitant]
  14. NEXIUM [Concomitant]
  15. PROPRANOLOL [Concomitant]
  16. VANCOMYCIN [Concomitant]
  17. LEVOFLOXACIN [Concomitant]
  18. HYDROCODONE [Concomitant]
  19. OXYCODONE [Concomitant]
  20. PROMETHAZINE [Concomitant]
  21. HYDROMORPHONE HCL [Concomitant]
  22. DEXAMETHASONE [Concomitant]
  23. LEVAQUIN [Concomitant]
  24. FLAGYL [Concomitant]
  25. ALDACTONE [Concomitant]
  26. FASLODEX [Concomitant]
  27. PRIMAXIN [Concomitant]
  28. CLEOCIN [Concomitant]
     Dosage: 150 MG, UNK
  29. MOTRIN [Concomitant]
     Dosage: 600 MG, UNK
  30. MORPHINE [Concomitant]

REACTIONS (30)
  - ANAEMIA [None]
  - ANHEDONIA [None]
  - ANXIETY [None]
  - APHASIA [None]
  - BONE DISORDER [None]
  - BONE PAIN [None]
  - CELLULITIS STREPTOCOCCAL [None]
  - DEATH [None]
  - DISCOMFORT [None]
  - EATING DISORDER [None]
  - EMOTIONAL DISTRESS [None]
  - HAEMOPTYSIS [None]
  - HEPATIC CIRRHOSIS [None]
  - INFLUENZA [None]
  - INJURY [None]
  - MALIGNANT NEOPLASM PROGRESSION [None]
  - MASTECTOMY [None]
  - OSTEONECROSIS OF JAW [None]
  - PAIN [None]
  - PALLIATIVE CARE [None]
  - PERIODONTITIS [None]
  - REFLUX OESOPHAGITIS [None]
  - RESPIRATORY TRACT INFECTION [None]
  - SCAR [None]
  - SINUSITIS [None]
  - TOOTH EXTRACTION [None]
  - TOOTH FRACTURE [None]
  - TOOTHACHE [None]
  - VARICES OESOPHAGEAL [None]
  - VOMITING [None]
